FAERS Safety Report 5271889-1 (Version None)
Quarter: 2007Q1

REPORT INFORMATION
  Report Type: 
  Country: None (occurrence: None)
  Receive Date: 20070316
  Receipt Date: 20070306
  Transmission Date: 20070707
  Serious: Yes (Hospitalization)
  Sender: FDA-Public Use
  Company Number: GXKR2007SE02323

PATIENT
  Age: 75 Year
  Sex: Female

DRUGS (10)
  1. LINATIL (NGX) (ENALAPRIL) TABLET, 20MG [Suspect]
     Indication: HYPERTONIA
     Dosage: 20 MG, QD, ORAL
     Route: 048
     Dates: end: 20061205
  2. WARFARIN SODIUM [Suspect]
  3. HYDREA (HYDROXYCARBAMIDE) HARD-GELATIN CAPSULE, 500MG [Concomitant]
  4. SIMVASTATIN [Concomitant]
  5. IMPUGAN (FUROSEMIDE) TABLET, 40 MG [Concomitant]
  6. LEVAXIN (LEVOTHYROXINE SODIUM), 50 UG [Concomitant]
  7. KLORAMFENIKOL (CHLORAMPHENICOL) EYE DROPS, 5 MG/ML [Concomitant]
  8. TROMBYL (ACETYLSALICYLIC ACID) TABLET, 160 MG [Concomitant]
  9. LACTULOSE (LACTULOSE) SOLUTION, 670 MG/ML [Concomitant]
  10. EMCONCOR CHF (BISOPROLOL FUMARATE) FILM-COATED TABLET, 2.5 MG [Concomitant]

REACTIONS (5)
  - CARDIAC FIBRILLATION [None]
  - CONFUSIONAL STATE [None]
  - DEHYDRATION [None]
  - GASTROINTESTINAL HAEMORRHAGE [None]
  - RENAL FAILURE ACUTE [None]
